FAERS Safety Report 22310105 (Version 1)
Quarter: 2023Q2

REPORT INFORMATION
  Report Type: Spontaneous
  Country: FR (occurrence: FR)
  Receive Date: 20230511
  Receipt Date: 20230511
  Transmission Date: 20230722
  Serious: Yes (Hospitalization)
  Sender: FDA-Public Use
  Company Number: None

PATIENT
  Age: 58 Year
  Sex: Female
  Weight: 68 kg

DRUGS (1)
  1. ARIPIPRAZOLE [Suspect]
     Active Substance: ARIPIPRAZOLE
     Indication: Schizoaffective disorder
     Dosage: 10 MILLIGRAM DAILY; 0-1-0
     Route: 065
     Dates: start: 20230120, end: 20230203

REACTIONS (2)
  - Neuropathy peripheral [Recovering/Resolving]
  - Myopathy [Recovered/Resolved]

NARRATIVE: CASE EVENT DATE: 20230203
